FAERS Safety Report 6669747-0 (Version None)
Quarter: 2010Q2

REPORT INFORMATION
  Report Type: 
  Country: None (occurrence: None)
  Receive Date: 20100406
  Receipt Date: 20100401
  Transmission Date: 20101027
  Serious: Yes (Hospitalization)
  Sender: FDA-Public Use
  Company Number: JP-ABBOTT-10P-087-0636153-00

PATIENT
  Sex: Male

DRUGS (8)
  1. NORVIR [Suspect]
     Indication: HIV INFECTION
     Route: 048
     Dates: start: 20031015
  2. VIDEX [Suspect]
     Indication: HIV INFECTION
     Route: 048
     Dates: start: 20000129, end: 20000611
  3. ZERIT [Suspect]
     Indication: HIV INFECTION
     Route: 048
     Dates: start: 19971020, end: 20000611
  4. REYATAZ [Suspect]
     Indication: HIV INFECTION
     Route: 048
     Dates: start: 20040206, end: 20080304
  5. VIRACEPT [Suspect]
     Indication: HIV INFECTION
     Route: 048
     Dates: start: 19990719, end: 20000611
  6. TRUVADA [Suspect]
     Indication: HIV INFECTION
  7. PREZISTA [Suspect]
     Indication: HIV INFECTION
  8. ISENTRESS [Suspect]
     Indication: HIV INFECTION

REACTIONS (7)
  - CHOLELITHIASIS [None]
  - DEPRESSION [None]
  - DYSPHORIA [None]
  - HYPERBILIRUBINAEMIA [None]
  - LIVER DISORDER [None]
  - MALAISE [None]
  - PANCREATIC MASS [None]
